FAERS Safety Report 6162007-6 (Version None)
Quarter: 2009Q2

REPORT INFORMATION
  Report Type: 
  Country: None (occurrence: None)
  Receive Date: 20090421
  Receipt Date: 20090415
  Transmission Date: 20091009
  Serious: Yes (Other)
  Sender: FDA-Public Use
  Company Number: GB-MERCK-0904GBR00050

PATIENT
  Age: 94 Year
  Sex: Female

DRUGS (10)
  1. FOSAMAX [Suspect]
     Indication: OSTEOPOROSIS
     Route: 048
     Dates: start: 20030509, end: 20090209
  2. ADCAL-D3 [Concomitant]
     Route: 065
  3. AMITRIPTYLINE HYDROCHLORIDE [Concomitant]
     Route: 065
  4. BENDROFLUMETHIAZIDE [Concomitant]
     Route: 065
  5. LERCANIDIPINE [Concomitant]
     Route: 065
  6. OMEPRAZOLE [Concomitant]
     Route: 065
  7. ACETAMINOPHEN [Concomitant]
     Route: 065
  8. SENNA [Concomitant]
     Route: 065
  9. TEMAZEPAM [Concomitant]
     Route: 065
  10. TRAMADOL HYDROCHLORIDE [Concomitant]
     Route: 065

REACTIONS (2)
  - ARTHRALGIA [None]
  - OSTEONECROSIS [None]
